FAERS Safety Report 24097609 (Version 4)
Quarter: 2025Q2

REPORT INFORMATION
  Report Type: Report from Study
  Country: JP (occurrence: JP)
  Receive Date: 20240716
  Receipt Date: 20250424
  Transmission Date: 20250716
  Serious: Yes (Hospitalization)
  Sender: EISAI
  Company Number: JP-Eisai-202404564_LEQ_P_1

PATIENT
  Age: 77 Year
  Sex: Male
  Weight: 58.6 kg

DRUGS (10)
  1. LEQEMBI [Suspect]
     Active Substance: LECANEMAB-IRMB
     Indication: Dementia Alzheimer^s type
     Route: 041
     Dates: start: 20240705, end: 20240705
  2. FEBUXOSTAT [Concomitant]
     Active Substance: FEBUXOSTAT
  3. MAGNESIUM OXIDE [Concomitant]
     Active Substance: MAGNESIUM OXIDE
  4. LANSOPRAZOLE [Concomitant]
     Active Substance: LANSOPRAZOLE
  5. PREDONINE [Concomitant]
     Active Substance: PREDNISOLONE
     Route: 048
  6. ONEALFA [Concomitant]
     Active Substance: ALFACALCIDOL
  7. FLUTICASONE PROPIONATE\SALMETEROL XINAFOATE [Concomitant]
     Active Substance: FLUTICASONE PROPIONATE\SALMETEROL XINAFOATE
     Dosage: INHALATANAT
  8. ANTEBATE:OINTMENT [Concomitant]
     Route: 061
  9. PREDONINE [Concomitant]
     Active Substance: PREDNISOLONE
  10. BETAMETHASONE BUTYRATE PROPIONATE [Concomitant]
     Active Substance: BETAMETHASONE BUTYRATE PROPIONATE

REACTIONS (2)
  - Infusion related reaction [Recovered/Resolved]
  - Delirium [Recovered/Resolved]

NARRATIVE: CASE EVENT DATE: 20240705
